FAERS Safety Report 6444720-6 (Version None)
Quarter: 2009Q4

REPORT INFORMATION
  Report Type: 
  Country: None (occurrence: None)
  Receive Date: 20091118
  Receipt Date: 20091110
  Transmission Date: 20100525
  Serious: Yes (Other)
  Sender: FDA-Public Use
  Company Number: A0817304A

PATIENT
  Age: 68 Year
  Sex: Female

DRUGS (2)
  1. AVANDIA [Suspect]
     Dosage: 8MG PER DAY
     Route: 065
     Dates: start: 20010101
  2. AVANDAMET [Suspect]
     Route: 065
     Dates: start: 20031101, end: 20030101

REACTIONS (2)
  - MYOCARDIAL INFARCTION [None]
  - VISUAL IMPAIRMENT [None]
